FAERS Safety Report 5266371-1 (Version None)
Quarter: 2007Q1

REPORT INFORMATION
  Report Type: 
  Country: None (occurrence: None)
  Receive Date: 20070315
  Receipt Date: 20070315
  Transmission Date: 20070707
  Serious: Yes (Other)
  Sender: FDA-Public Use
  Company Number: US-GLAXOSMITHKLINE-A0643176A

PATIENT
  Age: 45 Year
  Sex: Female

DRUGS (2)
  1. GOODY'S EXTRA STRENGTH HEADACHE POWDER [Suspect]
     Indication: MIGRAINE
     Dates: end: 20070313
  2. CRESTOR [Concomitant]

REACTIONS (6)
  - ABDOMINAL PAIN [None]
  - ANOREXIA [None]
  - DEPENDENCE [None]
  - GASTRIC HAEMORRHAGE [None]
  - INTENTIONAL DRUG MISUSE [None]
  - WEIGHT DECREASED [None]
